FAERS Safety Report 15626902 (Version 1)
Quarter: 2018Q4

REPORT INFORMATION
  Report Type: Spontaneous
  Country: US (occurrence: US)
  Receive Date: 20181116
  Receipt Date: 20181116
  Transmission Date: 20190205
  Serious: Yes (Hospitalization)
  Sender: FDA-Public Use
  Company Number: None

PATIENT
  Age: 62 Year
  Sex: Female

DRUGS (7)
  1. SSD CRE 1% [Concomitant]
  2. IBRANCE [Suspect]
     Active Substance: PALBOCICLIB
     Indication: BREAST CANCER
     Dosage: ?          OTHER FREQUENCY:D FOR 21 DAYS;?
     Route: 048
     Dates: start: 20180622
  3. ENOXPARIN INJ [Concomitant]
  4. LETROZOLE. [Concomitant]
     Active Substance: LETROZOLE
  5. ESCITALOPRAM [Concomitant]
     Active Substance: ESCITALOPRAM OXALATE
  6. FLUTICASONE. [Concomitant]
     Active Substance: FLUTICASONE
  7. OXYCODONE [Concomitant]
     Active Substance: OXYCODONE

REACTIONS (3)
  - Migraine [None]
  - Product dose omission [None]
  - Sinusitis [None]

NARRATIVE: CASE EVENT DATE: 20181012
